FAERS Safety Report 6099594-2 (Version None)
Quarter: 2009Q1

REPORT INFORMATION
  Report Type: 
  Country: None (occurrence: None)
  Receive Date: 20090226
  Receipt Date: 20090223
  Transmission Date: 20090719
  Serious: Yes (Hospitalization, Other)
  Sender: FDA-Public Use
  Company Number: 100#03#2009-00732

PATIENT
  Age: 32 Year
  Sex: Female

DRUGS (1)
  1. TRAMADOL HCL [Suspect]
     Indication: PAIN
     Dosage: 50 MG, ORAL
     Route: 048
     Dates: start: 20090129, end: 20090129

REACTIONS (3)
  - DIZZINESS [None]
  - DYSSTASIA [None]
  - SOMNOLENCE [None]
